FAERS Safety Report 12350931 (Version 1)
Quarter: 2016Q2

REPORT INFORMATION
  Report Type: Spontaneous
  Country: US (occurrence: US)
  Receive Date: 20160510
  Receipt Date: 20160510
  Transmission Date: 20160815
  Serious: No
  Sender: FDA-Public Use
  Company Number: US-VANDA PHARMACEUTICALS, INC-2016TASUS001093

PATIENT
  Sex: Female

DRUGS (1)
  1. HETLIOZ [Suspect]
     Active Substance: TASIMELTEON
     Indication: INSOMNIA
     Dosage: 20 MG, DAILY
     Route: 048
     Dates: start: 20151120, end: 20160205

REACTIONS (3)
  - Myalgia [Unknown]
  - Pain in extremity [Unknown]
  - Restless legs syndrome [Unknown]
